FAERS Safety Report 16752648 (Version 1)
Quarter: 2019Q3

REPORT INFORMATION
  Report Type: Spontaneous
  Country: CN (occurrence: CN)
  Receive Date: 20190828
  Receipt Date: 20190828
  Transmission Date: 20191005
  Serious: Yes (Other)
  Sender: FDA-Public Use
  Company Number: CN-BAXTER-2019BAX016498

PATIENT
  Age: 25 Year
  Sex: Female

DRUGS (3)
  1. DEXAMETHASONE. [Suspect]
     Active Substance: DEXAMETHASONE
     Indication: SWELLING
     Route: 065
     Dates: start: 20190816, end: 20190816
  2. METRONIDAZOLE AND SODIUM CHLORIDE INJECTION [Suspect]
     Active Substance: METRONIDAZOLE\SODIUM CHLORIDE
     Indication: CELLULITIS
     Route: 041
     Dates: start: 20190816, end: 20190816
  3. CEFAZOLIN PENTAHYDRATE [Suspect]
     Active Substance: CEFAZOLIN SODIUM
     Indication: ANTIINFLAMMATORY THERAPY
     Route: 041
     Dates: start: 20190816, end: 20190816

REACTIONS (3)
  - Pruritus [Recovered/Resolved]
  - Rash [Recovered/Resolved]
  - Obstructive airways disorder [Recovered/Resolved]

NARRATIVE: CASE EVENT DATE: 20190816
